FAERS Safety Report 9482222 (Version 2)
Quarter: 2013Q4

REPORT INFORMATION
  Report Type: Spontaneous
  Country: GB (occurrence: GB)
  Receive Date: 20130828
  Receipt Date: 20131021
  Transmission Date: 20140711
  Serious: Yes (Other)
  Sender: FDA-Public Use
  Company Number: GB-JNJFOC-20130811927

PATIENT
  Sex: Female
  Weight: 66 kg

DRUGS (8)
  1. STELARA [Suspect]
     Indication: PSORIASIS
     Route: 058
     Dates: start: 201107
  2. SALBUTAMOL [Concomitant]
     Route: 055
     Dates: start: 2006
  3. FLUTICASONE PROPIONATE / SALMETEROL [Concomitant]
     Dosage: 100 MCG + 50MCG
     Route: 055
     Dates: start: 2013
  4. CO-CODAMOL [Concomitant]
     Route: 048
     Dates: start: 2002
  5. METHOTREXATE [Concomitant]
     Route: 048
     Dates: start: 2006
  6. TIOTROPIUM [Concomitant]
     Route: 055
     Dates: start: 2006
  7. LATANOPROST [Concomitant]
     Route: 047
     Dates: start: 2012
  8. FOLIC ACID [Concomitant]
     Route: 048
     Dates: start: 2005

REACTIONS (2)
  - Chronic obstructive pulmonary disease [Not Recovered/Not Resolved]
  - Lower respiratory tract infection [Unknown]
